FAERS Safety Report 15936159 (Version 1)
Quarter: 2019Q1

REPORT INFORMATION
  Report Type: Spontaneous
  Country: US (occurrence: US)
  Receive Date: 20190208
  Receipt Date: 20190208
  Transmission Date: 20190417
  Serious: No
  Sender: FDA-Public Use
  Company Number: US-SUN PHARMACEUTICAL INDUSTRIES LTD-2018R1-193047

PATIENT
  Sex: Female

DRUGS (2)
  1. GUAIFENESIN. [Suspect]
     Active Substance: GUAIFENESIN
     Indication: NASAL CONGESTION
     Dosage: UNK
     Route: 065
     Dates: start: 20180927
  2. GUAIFENESIN. [Suspect]
     Active Substance: GUAIFENESIN
     Indication: MALAISE

REACTIONS (1)
  - Diarrhoea [Not Recovered/Not Resolved]

NARRATIVE: CASE EVENT DATE: 20180927
